FAERS Safety Report 18989920 (Version 2)
Quarter: 2021Q2

REPORT INFORMATION
  Report Type: Report from Study
  Country: None (occurrence: US)
  Receive Date: 20210310
  Receipt Date: 20210511
  Transmission Date: 20210717
  Serious: Yes (Other)
  Sender: FDA-Public Use
  Company Number: US-ABBVIE-21K-163-3804861-00

PATIENT
  Sex: Male
  Weight: 72.64 kg

DRUGS (4)
  1. HUMIRA [Suspect]
     Active Substance: ADALIMUMAB
     Indication: CROHN^S DISEASE
     Dosage: CITRATE FREE
     Route: 058
  2. HUMIRA [Suspect]
     Active Substance: ADALIMUMAB
     Dosage: CITRATE FREE
     Route: 058
     Dates: start: 2021
  3. PEPCID [Concomitant]
     Active Substance: FAMOTIDINE
     Indication: PRODUCT USED FOR UNKNOWN INDICATION
     Dates: start: 202102
  4. OMNIPAQUE [Concomitant]
     Active Substance: IOHEXOL
     Indication: PRODUCT USED FOR UNKNOWN INDICATION

REACTIONS (15)
  - Inflammation [Unknown]
  - Spinal cord compression [Not Recovered/Not Resolved]
  - Inflammatory bowel disease [Unknown]
  - Porcelain gallbladder [Unknown]
  - Abdominal discomfort [Unknown]
  - Faecal calprotectin increased [Unknown]
  - Kyphosis [Not Recovered/Not Resolved]
  - Cholecystitis [Unknown]
  - C-reactive protein increased [Unknown]
  - Intestinal prolapse [Unknown]
  - Drug level decreased [Unknown]
  - White blood cells stool positive [Unknown]
  - Scar inflammation [Unknown]
  - Rectal haemorrhage [Unknown]
  - Injection site haemorrhage [Unknown]
